FAERS Safety Report 5776738-0 (Version None)
Quarter: 2008Q2

REPORT INFORMATION
  Report Type: 
  Country: None (occurrence: None)
  Receive Date: 20080618
  Receipt Date: 20080617
  Transmission Date: 20081010
  Serious: No
  Sender: FDA-Public Use
  Company Number: US-ASTRAZENECA-2008UW05594

PATIENT
  Age: 81 Year
  Sex: Female
  Weight: 70.3 kg

DRUGS (5)
  1. SYMBICORT [Suspect]
     Indication: ASTHMA
     Dosage: 160/4.5 UG 1 PUFF BID (NOW ON 2ND REFILL)
     Route: 055
  2. CADUATE [Concomitant]
  3. SINGULAIR [Concomitant]
  4. ZETIA [Concomitant]
  5. MAGNESIUM [Concomitant]

REACTIONS (3)
  - COUGH [None]
  - DYSPHONIA [None]
  - DYSPNOEA [None]
